FAERS Safety Report 12864967 (Version 2)
Quarter: 2016Q4

REPORT INFORMATION
  Report Type: Report from Study
  Country: US (occurrence: US)
  Receive Date: 20161020
  Receipt Date: 20161130
  Transmission Date: 20170207
  Serious: No
  Sender: FDA-Public Use
  Company Number: US-AMGEN-USASL2016144128

PATIENT
  Age: 35 Year
  Sex: Female

DRUGS (3)
  1. ENBREL [Suspect]
     Active Substance: ETANERCEPT
     Dosage: UNK
     Route: 065
     Dates: start: 2016
  2. ENBREL [Suspect]
     Active Substance: ETANERCEPT
     Indication: RHEUMATOID ARTHRITIS
     Dosage: 50 MG, QWK
     Route: 065
     Dates: start: 201607, end: 2016
  3. ENBREL [Suspect]
     Active Substance: ETANERCEPT
     Dosage: 50 MG, UNK (EVERY FIVE DAYS)
     Route: 065
     Dates: start: 2016, end: 2016

REACTIONS (4)
  - Condition aggravated [Not Recovered/Not Resolved]
  - Drug dose omission [Unknown]
  - Pain [Not Recovered/Not Resolved]
  - Arthralgia [Recovering/Resolving]

NARRATIVE: CASE EVENT DATE: 2016
